FAERS Safety Report 21784810 (Version 1)
Quarter: 2022Q4

REPORT INFORMATION
  Report Type: Spontaneous
  Country: US (occurrence: US)
  Receive Date: 20221227
  Receipt Date: 20221227
  Transmission Date: 20230112
  Serious: Yes (Hospitalization)
  Sender: FDA-Public Use
  Company Number: US-PERRIGO-22US016455

PATIENT
  Age: 16 Year
  Sex: Male

DRUGS (2)
  1. ACETAMINOPHEN [Suspect]
     Active Substance: ACETAMINOPHEN
     Indication: Intentional overdose
     Dosage: 40,000 MG
     Route: 048
  2. UNSPECIFIED INGREDIENT [Suspect]
     Active Substance: UNSPECIFIED INGREDIENT
     Indication: Intentional overdose
     Dosage: 2,000 MG
     Route: 048

REACTIONS (4)
  - Intentional overdose [Recovered/Resolved]
  - Anticholinergic syndrome [Unknown]
  - Serotonin syndrome [Unknown]
  - Agitation [Unknown]
